FAERS Safety Report 4330884-7 (Version None)
Quarter: 2004Q1

REPORT INFORMATION
  Report Type: 
  Country: None (occurrence: None)
  Receive Date: 20040331
  Receipt Date: 20040319
  Transmission Date: 20041129
  Serious: Yes (Hospitalization)
  Sender: FDA-Public Use
  Company Number: 2004196116US

PATIENT
  Age: 33 Year
  Sex: Female
  Weight: 88.4 kg

DRUGS (6)
  1. BEXTRA [Suspect]
     Dosage: 20 MG
     Dates: start: 20030503
  2. TYLENOL W/ CODEINE NO. 3 [Suspect]
     Indication: MIGRAINE
     Dosage: UP TO 3 TIMES A DAY
  3. ACIPHEX [Concomitant]
  4. IMMUNOGLOBULINS (IMMUNOGLOBULINS) [Concomitant]
  5. ZYRTEC [Concomitant]
  6. ENDEROL [Concomitant]

REACTIONS (4)
  - CONCUSSION [None]
  - DIZZINESS [None]
  - HEADACHE [None]
  - LOSS OF CONSCIOUSNESS [None]
